FAERS Safety Report 8344538-3 (Version None)
Quarter: 2012Q2

REPORT INFORMATION
  Report Type: 
  Country: None (occurrence: None)
  Receive Date: 20120508
  Receipt Date: 20120504
  Transmission Date: 20120825
  Serious: Yes (Hospitalization)
  Sender: FDA-Public Use
  Company Number: PHHY2012AT038182

PATIENT
  Sex: Female

DRUGS (1)
  1. TASIGNA [Suspect]
     Dosage: 200 MG, 56 DOSAGE FORMS 1 TIME IN TOTAL
     Route: 048
     Dates: start: 20111120, end: 20111120

REACTIONS (8)
  - SUICIDAL BEHAVIOUR [None]
  - HEADACHE [None]
  - DIZZINESS [None]
  - ELECTROCARDIOGRAM QT PROLONGED [None]
  - SOMNOLENCE [None]
  - TRANSAMINASES INCREASED [None]
  - INTENTIONAL OVERDOSE [None]
  - FATIGUE [None]
